FAERS Safety Report 9018068 (Version 9)
Quarter: 2014Q4

REPORT INFORMATION
  Report Type: Spontaneous
  Country: US (occurrence: US)
  Receive Date: 20130117
  Receipt Date: 20141006
  Transmission Date: 20150529
  Serious: Yes (Hospitalization, Other)
  Sender: FDA-Public Use
  Company Number: US-009507513-1301USA007516

PATIENT
  Sex: Female
  Weight: 63.49 kg

DRUGS (4)
  1. FOSAMAX [Suspect]
     Active Substance: ALENDRONATE SODIUM
     Indication: OSTEOPOROSIS POSTMENOPAUSAL
     Dosage: UNK UNK, UNK
     Route: 048
     Dates: start: 1999
  2. FOSAMAX [Suspect]
     Active Substance: ALENDRONATE SODIUM
     Indication: OSTEOPOROSIS
     Dosage: 70 MG, QW
     Route: 048
  3. ALENDRONATE SODIUM. [Suspect]
     Active Substance: ALENDRONATE SODIUM
     Indication: OSTEOPOROSIS
     Dosage: 70 MG, UNK
     Route: 048
     Dates: start: 20080206, end: 20110606
  4. ALENDRONATE SODIUM. [Suspect]
     Active Substance: ALENDRONATE SODIUM
     Indication: OSTEOPOROSIS POSTMENOPAUSAL

REACTIONS (40)
  - Pubis fracture [Unknown]
  - Rib fracture [Unknown]
  - Fatigue [Unknown]
  - Intramedullary rod insertion [Unknown]
  - Low turnover osteopathy [Unknown]
  - Deep vein thrombosis [Unknown]
  - Pharyngitis [Unknown]
  - Hypoaesthesia [Unknown]
  - Osteoarthritis [Unknown]
  - Upper-airway cough syndrome [Unknown]
  - Ovarian failure [Unknown]
  - Sciatica [Unknown]
  - Back pain [Unknown]
  - Chronic kidney disease [Unknown]
  - Infection [Unknown]
  - Diabetes mellitus [Unknown]
  - Diverticulum [Unknown]
  - Joint effusion [Unknown]
  - Diabetes mellitus inadequate control [Unknown]
  - Varicose vein [Unknown]
  - Femur fracture [Unknown]
  - Osteomyelitis [Unknown]
  - Bronchitis [Recovering/Resolving]
  - Hypercholesterolaemia [Unknown]
  - Ligament sprain [Unknown]
  - Femur fracture [Unknown]
  - Impaired healing [Unknown]
  - Oestrogen deficiency [Unknown]
  - Exostosis [Unknown]
  - Transient ischaemic attack [Unknown]
  - Vitamin D deficiency [Unknown]
  - Basal cell carcinoma [Unknown]
  - Hypertension [Unknown]
  - Uterine disorder [Unknown]
  - Thrombosis [Unknown]
  - Osteopenia [Unknown]
  - Neoplasm [Unknown]
  - Sacroiliitis [Unknown]
  - Malaise [Unknown]
  - Arthralgia [Unknown]

NARRATIVE: CASE EVENT DATE: 2005
